FAERS Safety Report 20064872 (Version 2)
Quarter: 2021Q4

REPORT INFORMATION
  Report Type: Report from Study
  Country: JP (occurrence: JP)
  Receive Date: 20211112
  Receipt Date: 20211122
  Transmission Date: 20220304
  Serious: Yes (Other)
  Sender: FDA-Public Use
  Company Number: JP-CELLTRION INC.-2021JP015143

PATIENT

DRUGS (17)
  1. INVESTIGATIONAL BIOSIMILARS [Suspect]
     Active Substance: INVESTIGATIONAL BIOSIMILARS
     Indication: HER2 positive gastric cancer
     Dosage: 576 MILLIGRAM, QD
     Route: 041
     Dates: start: 20210616, end: 20210616
  2. INVESTIGATIONAL BIOSIMILARS [Suspect]
     Active Substance: INVESTIGATIONAL BIOSIMILARS
     Dosage: 432 MILLIGRAM, QD
     Route: 041
     Dates: start: 20210707, end: 20210707
  3. INVESTIGATIONAL BIOSIMILARS [Suspect]
     Active Substance: INVESTIGATIONAL BIOSIMILARS
     Dosage: 432 MILLIGRAM, QD
     Route: 041
     Dates: start: 20210804, end: 20210804
  4. INVESTIGATIONAL BIOSIMILARS [Suspect]
     Active Substance: INVESTIGATIONAL BIOSIMILARS
     Dosage: 432 MILLIGRAM, QD
     Route: 041
     Dates: start: 20210901, end: 20210901
  5. INVESTIGATIONAL BIOSIMILARS [Suspect]
     Active Substance: INVESTIGATIONAL BIOSIMILARS
     Dosage: 432 MILLIGRAM, QD
     Route: 041
     Dates: start: 20210922, end: 20210922
  6. OXALIPLATIN [Suspect]
     Active Substance: OXALIPLATIN
     Indication: HER2 positive gastric cancer
     Dosage: 245 MILLIGRAM, QD
     Route: 041
     Dates: start: 20210616, end: 20210616
  7. OXALIPLATIN [Suspect]
     Active Substance: OXALIPLATIN
     Dosage: 245 MILLIGRAM, QD
     Route: 041
     Dates: start: 20210707, end: 20210707
  8. OXALIPLATIN [Suspect]
     Active Substance: OXALIPLATIN
     Dosage: 196 MILLIGRAM, QD
     Route: 041
     Dates: start: 20210804, end: 20210804
  9. OXALIPLATIN [Suspect]
     Active Substance: OXALIPLATIN
     Dosage: 196 MILLIGRAM, QD
     Route: 041
     Dates: start: 20210901, end: 20210901
  10. GIMERACIL\OTERACIL\TEGAFUR [Suspect]
     Active Substance: GIMERACIL\OTERACIL\TEGAFUR
     Indication: HER2 positive gastric cancer
     Dosage: 120 MILLIGRAM, QD
     Route: 048
     Dates: start: 20210616, end: 20210629
  11. GIMERACIL\OTERACIL\TEGAFUR [Suspect]
     Active Substance: GIMERACIL\OTERACIL\TEGAFUR
     Dosage: 120 MILLIGRAM, QD
     Route: 048
     Dates: start: 20210707, end: 20210720
  12. GIMERACIL\OTERACIL\TEGAFUR [Suspect]
     Active Substance: GIMERACIL\OTERACIL\TEGAFUR
     Dosage: 120 MILLIGRAM, QD
     Route: 048
     Dates: start: 20210804, end: 20210817
  13. GIMERACIL\OTERACIL\TEGAFUR [Suspect]
     Active Substance: GIMERACIL\OTERACIL\TEGAFUR
     Dosage: 100 MILLIGRAM, QD
     Route: 048
     Dates: start: 20210901, end: 20210914
  14. GIMERACIL\OTERACIL\TEGAFUR [Suspect]
     Active Substance: GIMERACIL\OTERACIL\TEGAFUR
     Dosage: UNK MILLIGRAM
     Route: 048
     Dates: start: 20210922, end: 20211005
  15. DECADRON [Suspect]
     Active Substance: DEXAMETHASONE
     Indication: Nausea
     Dosage: UNK
     Route: 065
     Dates: start: 20210616, end: 20210901
  16. APREPITANT [Suspect]
     Active Substance: APREPITANT
     Indication: Nausea
     Dosage: UNK
     Route: 065
     Dates: start: 20210707, end: 20210901
  17. VONOPRAZAN FUMARATE [Concomitant]
     Active Substance: VONOPRAZAN FUMARATE
     Indication: HER2 positive gastric cancer
     Dosage: UNK
     Dates: start: 20210528

REACTIONS (9)
  - Neuropathy peripheral [Not Recovered/Not Resolved]
  - Aspartate aminotransferase increased [Not Recovered/Not Resolved]
  - Alanine aminotransferase increased [Recovered/Resolved]
  - Platelet count decreased [Recovered/Resolved]
  - Malaise [Unknown]
  - Nausea [Unknown]
  - Decreased appetite [Unknown]
  - Constipation [Not Recovered/Not Resolved]
  - Off label use [Unknown]

NARRATIVE: CASE EVENT DATE: 20210621
